FAERS Safety Report 7834197-8 (Version None)
Quarter: 2011Q4

REPORT INFORMATION
  Report Type: 
  Country: None (occurrence: None)
  Receive Date: 20111024
  Receipt Date: 20111013
  Transmission Date: 20120403
  Serious: No
  Sender: FDA-Public Use
  Company Number: PHHY2011DE67026

PATIENT
  Age: 59 Year
  Sex: Male
  Weight: 65 kg

DRUGS (3)
  1. CARBAMAZEPINE [Concomitant]
     Indication: TRIGEMINAL NEURALGIA
     Dosage: 1200 MG, DAILY
     Route: 048
     Dates: start: 20000101
  2. GILENYA [Suspect]
     Dosage: 0.5 MG/ DAY
     Route: 048
     Dates: start: 20110901, end: 20110908
  3. GILENYA [Suspect]
     Indication: MULTIPLE SCLEROSIS
     Dosage: 0.5 MG/ DAY
     Route: 048
     Dates: start: 20110714, end: 20110725

REACTIONS (2)
  - CONDITION AGGRAVATED [None]
  - TRIGEMINAL NEURALGIA [None]
